FAERS Safety Report 25943121 (Version 1)
Quarter: 2025Q4

REPORT INFORMATION
  Report Type: Spontaneous
  Country: US (occurrence: None)
  Receive Date: 20251020
  Receipt Date: 20251020
  Transmission Date: 20260117
  Serious: No
  Sender: FDA-CTU
  Company Number: None

PATIENT
  Age: 70 Year
  Sex: Male

DRUGS (1)
  1. VENCLEXTA [Suspect]
     Active Substance: VENETOCLAX
     Indication: B-cell lymphoma
     Dosage: FREQUENCY : DAILY;?
     Dates: start: 20250619, end: 20251020

REACTIONS (4)
  - Rash [None]
  - Diarrhoea [None]
  - Gastrooesophageal reflux disease [None]
  - Therapy interrupted [None]

NARRATIVE: CASE EVENT DATE: 20251020
